FAERS Safety Report 25522901 (Version 1)
Quarter: 2025Q3

REPORT INFORMATION
  Report Type: Report from Study
  Country: US (occurrence: US)
  Receive Date: 20250707
  Receipt Date: 20250707
  Transmission Date: 20251020
  Serious: Yes (Hospitalization)
  Sender: ACADIA PHARMACEUTICALS
  Company Number: US-ACADIA PHARMACEUTICALS INC.-ACA-2025-PIM-007856

PATIENT
  Age: 83 Year
  Sex: Female

DRUGS (14)
  1. NUPLAZID [Suspect]
     Active Substance: PIMAVANSERIN TARTRATE
     Indication: Parkinson^s disease
     Dosage: 34 MILLIGRAM, QD
     Route: 048
     Dates: start: 20250117
  2. NUPLAZID [Suspect]
     Active Substance: PIMAVANSERIN TARTRATE
     Indication: Hallucination
  3. ANXIOCALM [Concomitant]
  4. BUPRENORPHINE [Concomitant]
     Active Substance: BUPRENORPHINE
  5. ASPIRIN [Concomitant]
     Active Substance: ASPIRIN
  6. DULOXETINE [Concomitant]
     Active Substance: DULOXETINE
  7. GABAPENTIN [Concomitant]
     Active Substance: GABAPENTIN
  8. GEMTESA [Concomitant]
     Active Substance: VIBEGRON
  9. LINZESS [Concomitant]
     Active Substance: LINACLOTIDE
  10. MELATONIN [Concomitant]
     Active Substance: MELATONIN
  11. VITAMIN D NOS [Concomitant]
     Active Substance: CHOLECALCIFEROL\ERGOCALCIFEROL
  12. QUETIAPINE [Concomitant]
     Active Substance: QUETIAPINE
  13. CYCLOBENZAPRINE [Concomitant]
     Active Substance: CYCLOBENZAPRINE
  14. DONEPEZIL [Concomitant]
     Active Substance: DONEPEZIL

REACTIONS (3)
  - Mental disorder [Not Recovered/Not Resolved]
  - Screaming [Not Recovered/Not Resolved]
  - Aggression [Not Recovered/Not Resolved]

NARRATIVE: CASE EVENT DATE: 20250625
